FAERS Safety Report 5367128-3 (Version None)
Quarter: 2007Q2

REPORT INFORMATION
  Report Type: 
  Country: None (occurrence: None)
  Receive Date: 20070622
  Receipt Date: 20060801
  Transmission Date: 20071010
  Serious: No
  Sender: FDA-Public Use
  Company Number: US-BRISTOL-MYERS SQUIBB COMPANY-13461488

PATIENT
  Sex: Female
  Weight: 58 kg

DRUGS (3)
  1. SINEMET [Suspect]
     Indication: PARKINSON'S DISEASE
  2. TRAVATAN [Concomitant]
  3. ASPIRIN [Concomitant]

REACTIONS (1)
  - INTRAOCULAR PRESSURE TEST ABNORMAL [None]
